FAERS Safety Report 4754056-7 (Version None)
Quarter: 2005Q3

REPORT INFORMATION
  Report Type: 
  Country: None (occurrence: None)
  Receive Date: 20050826
  Receipt Date: 20050818
  Transmission Date: 20060218
  Serious: Yes (Hospitalization)
  Sender: FDA-Public Use
  Company Number: US-MERCK-0508USA03369

PATIENT
  Age: 54 Year
  Sex: Female
  Weight: 91 kg

DRUGS (6)
  1. VIOXX [Suspect]
     Route: 048
     Dates: end: 20031008
  2. SYNTHROID [Concomitant]
     Route: 065
  3. EVISTA [Concomitant]
     Route: 065
  4. VITAMINS (UNSPECIFIED) [Concomitant]
     Route: 065
  5. CALCIUM (UNSPECIFIED) [Concomitant]
     Route: 065
  6. NEXIUM [Concomitant]
     Route: 065

REACTIONS (18)
  - ARTERIOSCLEROSIS [None]
  - BASAL CELL CARCINOMA [None]
  - BREAST MASS [None]
  - BREAST PAIN [None]
  - CAROTID ARTERY STENOSIS [None]
  - CEREBROVASCULAR ACCIDENT [None]
  - CHEST DISCOMFORT [None]
  - FRACTURE DELAYED UNION [None]
  - HYPERTENSION [None]
  - INTERVERTEBRAL DISC DEGENERATION [None]
  - JOINT SWELLING [None]
  - LOWER LIMB FRACTURE [None]
  - MENOPAUSAL SYMPTOMS [None]
  - PAIN IN EXTREMITY [None]
  - RENAL IMPAIRMENT [None]
  - SLEEP APNOEA SYNDROME [None]
  - TACHYCARDIA [None]
  - UTERINE LEIOMYOMA [None]
